FAERS Safety Report 10025898 (Version 2)
Quarter: 2014Q1

REPORT INFORMATION
  Report Type: Spontaneous
  Country: US (occurrence: US)
  Receive Date: 20140320
  Receipt Date: 20140325
  Transmission Date: 20141002
  Serious: Yes (Hospitalization, Other)
  Sender: FDA-Public Use
  Company Number: US-TAKEDA-2014TUS001918

PATIENT
  Sex: 0

DRUGS (6)
  1. BRINTELLIX [Suspect]
     Indication: BIPOLAR I DISORDER
     Dosage: 10 MG, QD
     Route: 048
     Dates: start: 20140217
  2. BRINTELLIX [Suspect]
     Dosage: 20 MG, QD
     Route: 048
     Dates: end: 20140303
  3. CYMBALTA [Concomitant]
     Indication: DEPRESSION
     Dosage: 60 MG, QD
     Route: 048
     Dates: start: 20130213
  4. LATUDA [Concomitant]
     Indication: DEPRESSION
     Dosage: 40 MG, QD
     Route: 048
     Dates: start: 20130213
  5. KLONOPIN [Concomitant]
     Indication: PANIC DISORDER WITH AGORAPHOBIA
     Dosage: 0.5 MG, BID
     Route: 048
     Dates: start: 20130213
  6. FOCALIN [Concomitant]
     Indication: DEPRESSION
     Dosage: 20 MG, UNK
     Route: 048
     Dates: start: 20130210

REACTIONS (1)
  - Pancreatitis acute [Recovered/Resolved]
